FAERS Safety Report 22591768 (Version 1)
Quarter: 2023Q2

REPORT INFORMATION
  Report Type: Spontaneous
  Country: US (occurrence: US)
  Receive Date: 20230612
  Receipt Date: 20230612
  Transmission Date: 20230722
  Serious: No
  Sender: FDA-Public Use
  Company Number: US-RIGEL PHARMACEUTICALS, INC.-2022FOS001088

PATIENT
  Age: 84 Year
  Sex: Male
  Weight: 107.76 kg

DRUGS (3)
  1. TAVALISSE [Suspect]
     Active Substance: FOSTAMATINIB
     Indication: Immune thrombocytopenia
     Dosage: 100 MG, BID
     Route: 048
     Dates: start: 20221228
  2. TAVALISSE [Suspect]
     Active Substance: FOSTAMATINIB
     Indication: Thrombocytopenia
     Dosage: 100 MG, BID
     Route: 048
     Dates: start: 20221212, end: 202212
  3. LISINOPRIL [Concomitant]
     Active Substance: LISINOPRIL
     Indication: Product used for unknown indication
     Dosage: UNK

REACTIONS (19)
  - Haemorrhage [Unknown]
  - Headache [Unknown]
  - Blood test [Unknown]
  - Flatulence [Unknown]
  - Decreased appetite [Unknown]
  - Weight decreased [Unknown]
  - Laboratory test abnormal [Unknown]
  - Catheter site haemorrhage [Unknown]
  - Adverse event [Unknown]
  - Flatulence [Unknown]
  - Platelet count increased [Unknown]
  - Haemorrhage [Unknown]
  - Abdominal pain upper [Unknown]
  - Fatigue [Unknown]
  - Nausea [Unknown]
  - Blood pressure systolic increased [Unknown]
  - Blood pressure increased [Unknown]
  - Diarrhoea [Unknown]
  - Hypertension [Unknown]

NARRATIVE: CASE EVENT DATE: 20221201
